FAERS Safety Report 16939584 (Version 1)
Quarter: 2019Q4

REPORT INFORMATION
  Report Type: Spontaneous
  Country: IT (occurrence: IT)
  Receive Date: 20191021
  Receipt Date: 20191021
  Transmission Date: 20200122
  Serious: Yes (Hospitalization)
  Sender: FDA-Public Use
  Company Number: IT-TEVA-2019-IT-1123478

PATIENT
  Age: 71 Year
  Sex: Female

DRUGS (3)
  1. CERTICAN 0,75 MG COMPRESSE [Concomitant]
     Dosage: 150 MILLIGRAM
     Route: 048
  2. TACROLIMUS. [Concomitant]
     Active Substance: TACROLIMUS
     Route: 048
  3. ALLOPURINOLO TEVA ITALIA 300 MG COMPRESSE [Suspect]
     Active Substance: ALLOPURINOL
     Indication: HYPERURICAEMIA
     Dosage: 150 MILLIGRAM PER 2 DAYS
     Route: 048
     Dates: start: 20190820, end: 20190830

REACTIONS (2)
  - Blister [Not Recovered/Not Resolved]
  - Skin lesion [Not Recovered/Not Resolved]

NARRATIVE: CASE EVENT DATE: 20190828
